FAERS Safety Report 4628217-1 (Version None)
Quarter: 2005Q2

REPORT INFORMATION
  Report Type: 
  Country: None (occurrence: None)
  Receive Date: 20050401
  Receipt Date: 20040513
  Transmission Date: 20051028
  Serious: Yes (Other)
  Sender: FDA-Public Use
  Company Number: 9716

PATIENT
  Age: 50 Year
  Sex: Male

DRUGS (16)
  1. LEUCOVORIN CALCIUM [Suspect]
     Dosage: 380 MG PER_CYCLE
     Dates: start: 20030820, end: 20040115
  2. ACETYLCYSTEINE [Concomitant]
  3. BACLOFEN [Concomitant]
  4. CETUXIMAB [Concomitant]
  5. DRONABINOL [Concomitant]
  6. FLUOROURACIL [Concomitant]
  7. GUAIFENESIN [Concomitant]
  8. LOPERAMIDE HCL [Concomitant]
  9. LORAZEPAM [Concomitant]
  10. METOCLOPRAMIDE [Concomitant]
  11. OXALIPLATIN [Concomitant]
  12. PROCHLOPRERAZINE [Concomitant]
  13. SERTRALINE HCL [Concomitant]
  14. SILDENAFIL [Concomitant]
  15. WARFARIN SODIUM [Concomitant]
  16. ZOLPIDEM TARTRATE [Concomitant]

REACTIONS (2)
  - NAUSEA [None]
  - VOMITING [None]
